FAERS Safety Report 14872980 (Version 1)
Quarter: 2018Q2

REPORT INFORMATION
  Report Type: Spontaneous
  Country: US (occurrence: US)
  Receive Date: 20180510
  Receipt Date: 20180510
  Transmission Date: 20180711
  Serious: No
  Sender: FDA-Public Use
  Company Number: US-ASTRAZENECA-2018SE48575

PATIENT
  Age: 738 Month
  Sex: Female
  Weight: 109.3 kg

DRUGS (2)
  1. OMEPRAZOLE. [Suspect]
     Active Substance: OMEPRAZOLE
     Indication: GASTRIC DISORDER
     Route: 048
  2. TUDORZA PRESSAIR [Suspect]
     Active Substance: ACLIDINIUM BROMIDE
     Indication: CHRONIC OBSTRUCTIVE PULMONARY DISEASE
     Route: 055
     Dates: start: 20180403

REACTIONS (4)
  - Dyspnoea [Unknown]
  - Drug dose omission [Not Recovered/Not Resolved]
  - Eye pain [Unknown]
  - Device malfunction [Unknown]

NARRATIVE: CASE EVENT DATE: 201804
